FAERS Safety Report 18578362 (Version 1)
Quarter: 2020Q4

REPORT INFORMATION
  Report Type: Spontaneous
  Country: US (occurrence: US)
  Receive Date: 20201202
  Receipt Date: 20201202
  Transmission Date: 20210114
  Serious: Yes (Hospitalization)
  Sender: FDA-Public Use
  Company Number: None

PATIENT
  Age: 79 Year
  Sex: Male
  Weight: 34.47 kg

DRUGS (2)
  1. WARFARIN (WARFARIN NA 2.5MG TAB) [Suspect]
     Active Substance: WARFARIN SODIUM
     Indication: DEEP VEIN THROMBOSIS
     Dates: start: 20201111, end: 20201112
  2. HEPARIN (HEPARIN CA 25000UNT/ML INJ) [Suspect]
     Active Substance: HEPARIN CALCIUM
     Indication: DEEP VEIN THROMBOSIS
     Dates: start: 20201107, end: 20201112

REACTIONS (7)
  - Compartment syndrome [None]
  - SARS-CoV-2 test positive [None]
  - Anticoagulation drug level above therapeutic [None]
  - Haemorrhage [None]
  - Anaemia [None]
  - Haematoma [None]
  - Myalgia [None]

NARRATIVE: CASE EVENT DATE: 20201112
